FAERS Safety Report 25796791 (Version 1)
Quarter: 2025Q3

REPORT INFORMATION
  Report Type: Spontaneous
  Country: US (occurrence: US)
  Receive Date: 20250912
  Receipt Date: 20250912
  Transmission Date: 20251021
  Serious: No
  Sender: ANI
  Company Number: US-ANIPHARMA-2025-US-017381

PATIENT
  Age: 46 Year
  Sex: Female
  Weight: 75.75 kg

DRUGS (26)
  1. CORTICOTROPIN [Suspect]
     Active Substance: CORTICOTROPIN
     Indication: Multiple sclerosis
     Route: 030
     Dates: start: 20250402, end: 20250406
  2. RIZATRIPTAN [Concomitant]
     Active Substance: RIZATRIPTAN
  3. CYCLOBENZAPRINE [Concomitant]
     Active Substance: CYCLOBENZAPRINE
  4. FAMOTIDINE [Concomitant]
     Active Substance: FAMOTIDINE
  5. CLONAZEPAM [Concomitant]
     Active Substance: CLONAZEPAM
  6. METOPROLOL SUCCINATE [Concomitant]
     Active Substance: METOPROLOL SUCCINATE
  7. OMEPRAZOLE [Concomitant]
     Active Substance: OMEPRAZOLE
  8. IBUPROFEN [Concomitant]
     Active Substance: IBUPROFEN
  9. ACETAMINOPHEN [Concomitant]
     Active Substance: ACETAMINOPHEN
  10. VITAMIN D [Concomitant]
     Active Substance: VITAMIN D NOS
  11. GABAPENTIN [Concomitant]
     Active Substance: GABAPENTIN
  12. LEMTRADA [Concomitant]
     Active Substance: ALEMTUZUMAB
  13. LEVOTHYROXINE [Concomitant]
     Active Substance: LEVOTHYROXINE
  14. TEMAZEPAM [Concomitant]
     Active Substance: TEMAZEPAM
  15. BUSPIRONE [Concomitant]
     Active Substance: BUSPIRONE HYDROCHLORIDE
  16. VENLAFAXINE HCL [Concomitant]
     Active Substance: VENLAFAXINE HYDROCHLORIDE
  17. MENAQUINONE 6 [Concomitant]
     Active Substance: MENAQUINONE 6
  18. ZYRTEC [Concomitant]
     Active Substance: CETIRIZINE HYDROCHLORIDE
  19. PROBIOTICS NOS [Concomitant]
     Active Substance: PROBIOTICS NOS
  20. BRIUMVI [Concomitant]
     Active Substance: UBLITUXIMAB-XIIY
  21. NUVIGIL [Concomitant]
     Active Substance: ARMODAFINIL
  22. BUPROPION [Concomitant]
     Active Substance: BUPROPION
  23. LINZESS [Concomitant]
     Active Substance: LINACLOTIDE
  24. RESTASIS [Concomitant]
     Active Substance: CYCLOSPORINE
  25. ONDANSETRON HYDROCHLORIDE [Concomitant]
     Active Substance: ONDANSETRON HYDROCHLORIDE
  26. TOPIRAMATE [Concomitant]
     Active Substance: TOPIRAMATE

REACTIONS (9)
  - Acne [Not Recovered/Not Resolved]
  - Incorrect dose administered [Recovered/Resolved]
  - Swelling [Recovering/Resolving]
  - Oedema [Recovering/Resolving]
  - Thirst [Recovered/Resolved]
  - Product dose omission issue [Recovered/Resolved]
  - Contraindicated product administered [Recovered/Resolved]
  - Drug hypersensitivity [Not Recovered/Not Resolved]
  - Stomatitis [Not Recovered/Not Resolved]

NARRATIVE: CASE EVENT DATE: 20250402
